FAERS Safety Report 9900282 (Version 1)
Quarter: 2014Q1

REPORT INFORMATION
  Report Type: Spontaneous
  Country: US (occurrence: US)
  Receive Date: 20140215
  Receipt Date: 20140215
  Transmission Date: 20141002
  Serious: Yes (Other)
  Sender: FDA-Public Use
  Company Number: US-ASTRAZENECA-2014SE09250

PATIENT
  Age: 80 Year
  Sex: Female
  Weight: 93 kg

DRUGS (9)
  1. SYMBICORT PMDI [Suspect]
     Indication: EMPHYSEMA
     Route: 055
     Dates: start: 201311
  2. SYMBICORT PMDI [Suspect]
     Indication: DYSPNOEA
     Route: 055
     Dates: start: 201311
  3. SYMBICORT PMDI [Suspect]
     Indication: EMPHYSEMA
     Dosage: 2 PUFFS BID
     Route: 055
  4. SYMBICORT PMDI [Suspect]
     Indication: DYSPNOEA
     Dosage: 2 PUFFS BID
     Route: 055
  5. SYMBICORT PMDI [Suspect]
     Indication: EMPHYSEMA
     Dosage: 160/4.5 1 PUFF BID
     Route: 055
     Dates: start: 201312
  6. SYMBICORT PMDI [Suspect]
     Indication: DYSPNOEA
     Dosage: 160/4.5 1 PUFF BID
     Route: 055
     Dates: start: 201312
  7. SYMBICORT PMDI [Suspect]
     Indication: EMPHYSEMA
     Dosage: 160/4.5 1 PUFF DAILY
     Route: 055
     Dates: start: 201402
  8. SYMBICORT PMDI [Suspect]
     Indication: DYSPNOEA
     Dosage: 160/4.5 1 PUFF DAILY
     Route: 055
     Dates: start: 201402
  9. MULTIVITAMIN [Concomitant]
     Dosage: UNKNOWN DAILY

REACTIONS (11)
  - Obstructive airways disorder [Unknown]
  - Arthritis [Unknown]
  - Body height decreased [Unknown]
  - Rash pruritic [Recovered/Resolved]
  - Rash [Unknown]
  - Eczema [Unknown]
  - Drug effect increased [Unknown]
  - Intentional drug misuse [Unknown]
  - Intentional drug misuse [Unknown]
  - Off label use [Unknown]
  - Off label use [Unknown]
